FAERS Safety Report 21727588 (Version 6)
Quarter: 2023Q2

REPORT INFORMATION
  Report Type: Report from Study
  Country: CO (occurrence: CO)
  Receive Date: 20221214
  Receipt Date: 20230516
  Transmission Date: 20230722
  Serious: Yes (Other)
  Sender: FDA-Public Use
  Company Number: CO-BAYER-2022A169674

PATIENT
  Sex: Male

DRUGS (2)
  1. EYLEA [Suspect]
     Active Substance: AFLIBERCEPT
     Indication: Age-related macular degeneration
     Dosage: 2 MG, BOTH EYE (2MG INTRAVITREAL MONTHLY FOR 3 MONTHS, THEN EVERY 2 MONTHS THEREAFTER), SOL FOR INJ,
     Route: 031
     Dates: start: 20221007, end: 20221007
  2. EYLEA [Suspect]
     Active Substance: AFLIBERCEPT
     Dosage: 2 MG, LEFT EYE (2MG INTRAVITREAL MONTHLY FOR 3 MONTHS, THEN EVERY 2 MONTHS THEREAFTER), SOL FOR INJ,
     Route: 031
     Dates: start: 20221130, end: 20221130

REACTIONS (7)
  - Noninfective retinitis [Recovered/Resolved]
  - Blindness unilateral [Not Recovered/Not Resolved]
  - Eye inflammation [Unknown]
  - Inappropriate schedule of product administration [Not Recovered/Not Resolved]
  - Injection site pain [Not Recovered/Not Resolved]
  - Vision blurred [Not Recovered/Not Resolved]
  - Eye swelling [Not Recovered/Not Resolved]

NARRATIVE: CASE EVENT DATE: 20221007
